FAERS Safety Report 20064123 (Version 1)
Quarter: 2021Q4

REPORT INFORMATION
  Report Type: Spontaneous
  Country: US (occurrence: None)
  Receive Date: 20211111
  Receipt Date: 20211111
  Transmission Date: 20220303
  Serious: Yes (Hospitalization)
  Sender: FDA-Public Use
  Company Number: None

PATIENT
  Age: 72 Year
  Sex: Female

DRUGS (1)
  1. AMBRISENTAN [Suspect]
     Active Substance: AMBRISENTAN
     Indication: Pulmonary arterial hypertension
     Dosage: FREQUENCY : DAILY;?
     Route: 048
     Dates: start: 20130723

REACTIONS (10)
  - Sepsis [None]
  - Colitis [None]
  - Proctitis [None]
  - Ureteritis [None]
  - Pyelonephritis [None]
  - Oesophagitis [None]
  - Gastritis [None]
  - Mental status changes [None]
  - Hydronephrosis [None]
  - Chest discomfort [None]

NARRATIVE: CASE EVENT DATE: 20211016
